FAERS Safety Report 5582591-0 (Version None)
Quarter: 2008Q1

REPORT INFORMATION
  Report Type: 
  Country: None (occurrence: None)
  Receive Date: 20080107
  Receipt Date: 20080103
  Transmission Date: 20080703
  Serious: Yes (Hospitalization, Other)
  Sender: FDA-Public Use
  Company Number: US-RB-008885-08

PATIENT
  Sex: Male
  Weight: 1.35 kg

DRUGS (3)
  1. SUBUTEX [Suspect]
     Route: 064
     Dates: start: 20070523, end: 20071025
  2. SUBOXONE [Suspect]
     Route: 064
     Dates: start: 20070320
  3. SUBOXONE [Suspect]
     Route: 064
     Dates: end: 20070522

REACTIONS (3)
  - DRUG EXPOSURE DURING PREGNANCY [None]
  - FOETAL DISTRESS SYNDROME [None]
  - PREMATURE BABY [None]
